FAERS Safety Report 8456078-1 (Version None)
Quarter: 2012Q2

REPORT INFORMATION
  Report Type: 
  Country: None (occurrence: None)
  Receive Date: 20120621
  Receipt Date: 20120611
  Transmission Date: 20120825
  Serious: Yes (Other)
  Sender: FDA-Public Use
  Company Number: JP-ROCHE-1070625

PATIENT
  Sex: Female
  Weight: 43 kg

DRUGS (3)
  1. MIRCERA [Suspect]
     Route: 042
     Dates: start: 20120428, end: 20120510
  2. MIRCERA [Suspect]
     Indication: NEPHROGENIC ANAEMIA
     Route: 042
     Dates: start: 20120103, end: 20120201
  3. MIRCERA [Suspect]
     Route: 042
     Dates: start: 20120202, end: 20120227

REACTIONS (2)
  - WHITE BLOOD CELL COUNT DECREASED [None]
  - RECTAL ULCER [None]
